FAERS Safety Report 6432931-5 (Version None)
Quarter: 2009Q4

REPORT INFORMATION
  Report Type: 
  Country: None (occurrence: None)
  Receive Date: 20091109
  Receipt Date: 20091103
  Transmission Date: 20100525
  Serious: Yes (Hospitalization)
  Sender: FDA-Public Use
  Company Number: US-MERCK-0909USA02013

PATIENT
  Age: 82 Year
  Sex: Female

DRUGS (16)
  1. ZETIA [Suspect]
     Indication: BLOOD CHOLESTEROL INCREASED
     Route: 048
  2. CELEBREX [Suspect]
     Route: 048
     Dates: end: 20090101
  3. PLAVIX [Suspect]
     Route: 048
  4. ASPIRIN [Suspect]
     Route: 048
  5. ACETAMINOPHEN [Concomitant]
     Route: 048
  6. BONIVA [Concomitant]
     Route: 065
  7. CARBATROL [Concomitant]
     Route: 065
  8. EXELON [Concomitant]
     Route: 065
  9. FUROSEMIDE [Concomitant]
     Route: 065
  10. ISOSORBIDE [Concomitant]
     Route: 065
  11. LEVOTHYROXINE SODIUM [Concomitant]
     Route: 065
  12. NAMENDA [Concomitant]
     Route: 065
  13. QUINAPRIL HYDROCHLORIDE [Concomitant]
     Route: 065
  14. SERTRALINE HYDROCHLORIDE [Concomitant]
     Route: 065
  15. SIMVASTATIN [Concomitant]
     Route: 065
  16. STARLIX [Concomitant]
     Route: 065

REACTIONS (6)
  - ANAEMIA [None]
  - DUODENAL ULCER [None]
  - GASTRITIS [None]
  - OESOPHAGEAL STENOSIS [None]
  - OVERDOSE [None]
  - UPPER GASTROINTESTINAL HAEMORRHAGE [None]
